FAERS Safety Report 9916126 (Version 1)
Quarter: 2014Q1

REPORT INFORMATION
  Report Type: Spontaneous
  Country: US (occurrence: None)
  Receive Date: 20140219
  Receipt Date: 20140219
  Transmission Date: 20141002
  Serious: Yes (Other)
  Sender: FDA-Public Use
  Company Number: CC13-1309

PATIENT
  Age: 85 Year
  Sex: Female
  Weight: 72.58 kg

DRUGS (8)
  1. METRONIDAZOLE [Suspect]
     Indication: ROSACEA
     Dosage: APPLY TO ENTIRE FACE QHS
     Dates: start: 201311
  2. SYNTHROID [Concomitant]
  3. OMEPRAZOLE [Concomitant]
  4. CENTRUM [Concomitant]
  5. DRAMANINE [Concomitant]
  6. TEMAZEPAM [Concomitant]
  7. LOMOTIL [Concomitant]
  8. BABY ASPIRIN [Concomitant]

REACTIONS (6)
  - Androgenetic alopecia [None]
  - Condition aggravated [None]
  - Rash pustular [None]
  - Drug ineffective [None]
  - Hyperaesthesia [None]
  - Erythema [None]
